FAERS Safety Report 6007341-5 (Version None)
Quarter: 2008Q4

REPORT INFORMATION
  Report Type: 
  Country: None (occurrence: None)
  Receive Date: 20081217
  Receipt Date: 20080402
  Transmission Date: 20090506
  Serious: No
  Sender: FDA-Public Use
  Company Number: US-ASTRAZENECA-2008UW05037

PATIENT
  Age: 56 Year
  Sex: Male

DRUGS (4)
  1. CRESTOR [Suspect]
     Route: 048
     Dates: start: 20080101, end: 20080201
  2. CRESTOR [Suspect]
     Route: 048
     Dates: start: 20070101, end: 20070101
  3. CRESTOR [Suspect]
     Route: 048
     Dates: start: 20040101
  4. ZETIA [Concomitant]
     Dates: start: 20050101

REACTIONS (3)
  - BACK PAIN [None]
  - MUSCLE SPASMS [None]
  - MUSCLE STRAIN [None]
